FAERS Safety Report 4339661-4 (Version None)
Quarter: 2004Q1

REPORT INFORMATION
  Report Type: 
  Country: None (occurrence: None)
  Receive Date: 20040329
  Receipt Date: 20040105
  Transmission Date: 20041129
  Serious: No
  Sender: FDA-Public Use
  Company Number: 04P-163-0246338-00

PATIENT
  Age: 49 Year
  Sex: Female
  Weight: 73.4827 kg

DRUGS (5)
  1. HUMIRA [Suspect]
     Indication: RHEUMATOID ARTHRITIS
     Dosage: 40 MG, 1 IN 2 WK, SUBCUTANEOUS
     Route: 058
     Dates: start: 20031213
  2. PREDNISONE [Concomitant]
  3. NAPROXEN SODIUM [Concomitant]
  4. SELENIUM TRACE METAL ADDITIVE [Concomitant]
  5. COD-LIVER OIL [Concomitant]

REACTIONS (2)
  - CHILLS [None]
  - JOINT SWELLING [None]
